FAERS Safety Report 8036668-0 (Version None)
Quarter: 2012Q1

REPORT INFORMATION
  Report Type: 
  Country: None (occurrence: None)
  Receive Date: 20120111
  Receipt Date: 20120105
  Transmission Date: 20120608
  Serious: Yes (Other)
  Sender: FDA-Public Use
  Company Number: GB-PFIZER INC-2012004194

PATIENT
  Age: 29 Year
  Sex: Male
  Weight: 45 kg

DRUGS (27)
  1. CINACALCET [Concomitant]
     Dosage: 30 MG, 2X/DAY
  2. FLUCLOXACILLIN [Concomitant]
     Dosage: 500 MG, 4X/DAY
  3. MAGNESIUM SULFATE [Concomitant]
     Dosage: UNK, AS NECESSARY
  4. SEVELAMER [Concomitant]
     Dosage: 800 MG, UNK
  5. ADAPALENE [Concomitant]
     Dosage: 0.1 %, UNK
  6. DIAZEPAM [Concomitant]
     Dosage: 5 MG, 1X/DAY
  7. TEMAZEPAM [Concomitant]
     Dosage: 10 MG, 1X/DAY
  8. ALENDRONIC ACID [Concomitant]
     Dosage: 70 MG, WEEKLY
  9. ATORVASTATIN [Concomitant]
     Dosage: 10 MG, 1X/DAY
  10. CLARITHROMYCIN [Concomitant]
     Dosage: 500 MG, ONCE EVERY 12 HOURS
  11. FOLIC ACID [Concomitant]
     Dosage: 5 MG, 1X/DAY
  12. NICORETTE [Concomitant]
     Dosage: 15 MG, 1X/DAY
  13. PREDNISOLONE [Concomitant]
     Dosage: UNK
  14. SILDENAFIL [Concomitant]
     Dosage: 100 MG, UNK
  15. VARENICLINE TARTRATE [Suspect]
     Indication: SMOKING CESSATION THERAPY
     Dosage: 1 MG, 1X/DAY
     Route: 048
     Dates: start: 20111121, end: 20111211
  16. METOCLOPRAMIDE [Concomitant]
     Dosage: 10 MG, 3X/DAY
  17. E.45 [Concomitant]
     Dosage: UNK, AS NEEDED
  18. IPRATROPIUM BROMIDE [Concomitant]
     Dosage: 40 UG, 3X/DAY
  19. NICORETTE [Concomitant]
     Dosage: UNK
     Route: 055
  20. AMLODIPINE [Concomitant]
     Dosage: 10 MG, 1X/DAY
  21. CITALOPRAM [Concomitant]
     Dosage: 40 MG, 1X/DAY
  22. CO-DANTHRAMER [Concomitant]
     Dosage: UNK
  23. OMEPRAZOLE [Concomitant]
     Dosage: 40 MG, 2X/DAY
  24. ACETAMINOPHEN AND CODEINE PHOSPHATE [Concomitant]
     Dosage: UNK
  25. FORTISIP [Concomitant]
     Dosage: UNK
  26. TAMOXIFEN [Concomitant]
     Dosage: 20 MG, 1X/DAY
  27. NICOTINAMIDE/PYRIDOXINE HCL/RIBOFLAVIN/THIAMINE HYDROCHLORID [Concomitant]
     Dosage: 1 DF, 1X/DAY

REACTIONS (3)
  - DIZZINESS [None]
  - PARAESTHESIA [None]
  - CHEST PAIN [None]
